FAERS Safety Report 6282247-5 (Version None)
Quarter: 2009Q3

REPORT INFORMATION
  Report Type: 
  Country: None (occurrence: None)
  Receive Date: 20090724
  Receipt Date: 20090717
  Transmission Date: 20100115
  Serious: Yes (Other)
  Sender: FDA-Public Use
  Company Number: FR-BAYER-200926095GPV

PATIENT
  Age: 77 Year
  Sex: Female

DRUGS (14)
  1. NIMOTOP [Suspect]
     Indication: DRUG USE FOR UNKNOWN INDICATION
     Dosage: TOTAL DAILY DOSE: 12 DF
     Route: 048
     Dates: start: 20080610, end: 20080711
  2. DOLIPRANE [Suspect]
     Indication: PAIN
     Dosage: TOTAL DAILY DOSE: 2000 MG
     Route: 048
     Dates: start: 20080610, end: 20080711
  3. OGASTORO [Suspect]
     Indication: GASTRODUODENAL ULCER
     Dosage: TOTAL DAILY DOSE: 1 DF
     Route: 048
     Dates: start: 20080610, end: 20080711
  4. ELISOR [Suspect]
     Indication: DYSLIPIDAEMIA
     Dosage: TOTAL DAILY DOSE: 40 MG  UNIT DOSE: 40 MG
     Route: 048
     Dates: start: 20080610, end: 20080711
  5. LOVENOX [Suspect]
     Indication: DRUG USE FOR UNKNOWN INDICATION
     Dosage: 4000/0.4 IU/ML / 1 DF A DAY
     Route: 065
     Dates: start: 20080611, end: 20080711
  6. IMOVANE [Suspect]
     Indication: INSOMNIA
     Dosage: TOTAL DAILY DOSE: 7.5 MG  UNIT DOSE: 7.5 MG
     Route: 048
     Dates: start: 20080610, end: 20080711
  7. SPECIAFOLDINE [Suspect]
     Indication: ANAEMIA
     Dosage: TOTAL DAILY DOSE: 1 DF
     Route: 048
     Dates: start: 20080624, end: 20080711
  8. POLYETHYLENE GLYCOL [Concomitant]
     Indication: CONSTIPATION
     Dosage: TOTAL DAILY DOSE: 1 DF
     Dates: start: 20080630, end: 20080711
  9. TARDYFERON [Concomitant]
     Indication: ANAEMIA
     Route: 048
     Dates: start: 20080702, end: 20080711
  10. IXPRIM [Concomitant]
     Dates: end: 20080624
  11. DIFFU K [Concomitant]
     Dosage: TOTAL DAILY DOSE: 4 DF
     Dates: end: 20080710
  12. IRBESARTAN [Concomitant]
     Dosage: TOTAL DAILY DOSE: 75 MG  UNIT DOSE: 75 MG
     Dates: end: 20080702
  13. AERIUS [Concomitant]
     Dosage: 0-0-1
     Dates: end: 20080625
  14. ATARAX [Concomitant]
     Dosage: TOTAL DAILY DOSE: 25 MG  UNIT DOSE: 25 MG
     Dates: end: 20080624

REACTIONS (2)
  - ANGIOEDEMA [None]
  - FACE OEDEMA [None]
